FAERS Safety Report 19977823 (Version 1)
Quarter: 2021Q4

REPORT INFORMATION
  Report Type: Spontaneous
  Country: GB (occurrence: GB)
  Receive Date: 20211020
  Receipt Date: 20211020
  Transmission Date: 20220303
  Serious: Yes (Life-Threatening, Hospitalization)
  Sender: FDA-Public Use
  Company Number: GB-ABBVIE-21K-167-4127156-00

PATIENT
  Age: 12 Year
  Sex: Male
  Weight: 48.5 kg

DRUGS (2)
  1. VALPROATE SODIUM [Suspect]
     Active Substance: VALPROATE SODIUM
     Indication: Generalised tonic-clonic seizure
     Dosage: INCREASING DOSE INITIALLY 200MG TWICE DAILY BUILDING UP TO 500 MG TWICE DAILY OVER 4 WEEKS
     Route: 048
     Dates: start: 20180924, end: 20181119
  2. LAMOTRIGINE [Concomitant]
     Active Substance: LAMOTRIGINE
     Indication: Product used for unknown indication

REACTIONS (6)
  - Pica [Recovered/Resolved with Sequelae]
  - Gastrointestinal perforation [Recovered/Resolved with Sequelae]
  - Increased appetite [Unknown]
  - Venous thrombosis [Unknown]
  - Pyrexia [Unknown]
  - Abdominal pain [Unknown]

NARRATIVE: CASE EVENT DATE: 20181001
